FAERS Safety Report 10298063 (Version 1)
Quarter: 2014Q3

REPORT INFORMATION
  Report Type: Spontaneous
  Country: US (occurrence: US)
  Receive Date: 20140711
  Receipt Date: 20140711
  Transmission Date: 20150326
  Serious: No
  Sender: FDA-Public Use
  Company Number: US-GLAXOSMITHKLINE-A1036835A

PATIENT
  Age: 62 Year
  Sex: Female

DRUGS (7)
  1. LIPITOR [Concomitant]
     Active Substance: ATORVASTATIN CALCIUM
  2. NOVOLOG [Concomitant]
     Active Substance: INSULIN ASPART
  3. DIAVAN [Concomitant]
     Active Substance: ASCORBIC ACID/ CHROMIUM/ SELENIUM/VANADYL SULFATE
  4. LANTUS [Concomitant]
     Active Substance: INSULIN GLARGINE
  5. ATENOLOL. [Concomitant]
     Active Substance: ATENOLOL
  6. FLOVENT [Suspect]
     Active Substance: FLUTICASONE PROPIONATE
     Indication: ASTHMA
     Dosage: 1PUFF TWICE PER DAY
     Route: 055
     Dates: start: 201306
  7. AMLODIPINE [Concomitant]
     Active Substance: AMLODIPINE BESYLATE

REACTIONS (1)
  - Feeling abnormal [Recovered/Resolved]
